FAERS Safety Report 5918631-6 (Version None)
Quarter: 2008Q4

REPORT INFORMATION
  Report Type: 
  Country: None (occurrence: None)
  Receive Date: 20081015
  Receipt Date: 20081008
  Transmission Date: 20090506
  Serious: Yes (Life-Threatening, Hospitalization, Disabling, Other)
  Sender: FDA-Public Use
  Company Number: BE-AVENTIS-200815216EU

PATIENT
  Age: 76 Year
  Sex: Male
  Weight: 79 kg

DRUGS (3)
  1. CLEXANE [Suspect]
     Route: 040
     Dates: start: 20080923, end: 20080923
  2. ASAFLOW [Concomitant]
  3. PLAVIX [Concomitant]

REACTIONS (1)
  - CATHETER THROMBOSIS [None]
